FAERS Safety Report 10627318 (Version 1)
Quarter: 2014Q4

REPORT INFORMATION
  Report Type: Report from Study
  Country: SE (occurrence: SE)
  Receive Date: 20141204
  Receipt Date: 20141204
  Transmission Date: 20150529
  Serious: Yes (Hospitalization)
  Sender: FDA-Public Use
  Company Number: SE-BAYER-2014-175344

PATIENT
  Sex: Female

DRUGS (1)
  1. REGORAFENIB [Suspect]
     Active Substance: REGORAFENIB

REACTIONS (7)
  - Palmar-plantar erythrodysaesthesia syndrome [None]
  - Blood electrolytes abnormal [None]
  - Stomatitis [None]
  - Febrile neutropenia [None]
  - Neutropenia [None]
  - Diarrhoea [None]
  - Nervous system disorder [None]
